FAERS Safety Report 18294617 (Version 1)
Quarter: 2020Q3

REPORT INFORMATION
  Report Type: Spontaneous
  Country: BR (occurrence: BR)
  Receive Date: 20200922
  Receipt Date: 20200922
  Transmission Date: 20201103
  Serious: Yes (Other)
  Sender: FDA-Public Use
  Company Number: NVSC2020BR256033

PATIENT
  Sex: Female

DRUGS (1)
  1. GLAUTIMOL [Suspect]
     Active Substance: TIMOLOL MALEATE
     Indication: PRODUCT USED FOR UNKNOWN INDICATION
     Dosage: UNK (FLASK SOLUTION WITH 5ML, A LONG TIME AGO)
     Route: 065

REACTIONS (1)
  - Glaucoma [Unknown]
